FAERS Safety Report 9387275 (Version 1)
Quarter: 2013Q3

REPORT INFORMATION
  Report Type: Spontaneous
  Country: CN (occurrence: None)
  Receive Date: 20130702
  Receipt Date: 20130702
  Transmission Date: 20140515
  Serious: Yes (Other)
  Sender: FDA-Public Use
  Company Number: FK201302216

PATIENT
  Age: 78 Year
  Sex: Male

DRUGS (1)
  1. INTRALIPID [Suspect]
     Indication: MEDICAL DIET
     Dosage: (NOT OTHERWISE SPECIFIED)
     Route: 042
     Dates: start: 20120802, end: 20120802

REACTIONS (4)
  - Temperature intolerance [None]
  - Chills [None]
  - Vomiting [None]
  - Body temperature increased [None]
